FAERS Safety Report 25099912 (Version 1)
Quarter: 2025Q1

REPORT INFORMATION
  Report Type: Spontaneous
  Country: US (occurrence: None)
  Receive Date: 20250319
  Receipt Date: 20250319
  Transmission Date: 20250409
  Serious: Yes (Other)
  Sender: FDA-CTU
  Company Number: None

PATIENT
  Sex: Female

DRUGS (11)
  1. TACROLIMUS [Suspect]
     Active Substance: TACROLIMUS
     Indication: Liver transplant
     Dosage: FREQUENCY : TWICE A DAY;?
     Route: 048
     Dates: start: 20250128
  2. CETIRIZINE HCL [Concomitant]
     Active Substance: CETIRIZINE HYDROCHLORIDE
  3. DESVENLAFAX TAB 50MG ER [Concomitant]
  4. DIAZEPAM TAB 5MG [Concomitant]
  5. MULTIPLE VIT TAB [Concomitant]
  6. MYCOPHENOLIC ACID [Concomitant]
     Active Substance: MYCOPHENOLIC ACID
  7. MYCOPHENOLIC ACID [Concomitant]
     Active Substance: MYCOPHENOLIC ACID
  8. PANTOPRAZOLE TAB 40MG [Concomitant]
  9. PRISTIQ TAB 50MG [Concomitant]
  10. PROPRANOLOL TAB 20MG [Concomitant]
  11. SODIUM FLUOR GEL 1.1% [Concomitant]

REACTIONS (5)
  - Disorientation [None]
  - Mental status changes [None]
  - Diarrhoea [None]
  - Vomiting [None]
  - Headache [None]
